FAERS Safety Report 11327600 (Version 4)
Quarter: 2015Q4

REPORT INFORMATION
  Report Type: Spontaneous
  Country: JP (occurrence: JP)
  Receive Date: 20150731
  Receipt Date: 20151125
  Transmission Date: 20160304
  Serious: Yes (Other)
  Sender: FDA-Public Use
  Company Number: JP-MERCK-1507JPN014587

PATIENT
  Age: 65 Year
  Sex: Female

DRUGS (5)
  1. BROTIZOLAM [Concomitant]
     Active Substance: BROTIZOLAM
     Indication: INITIAL INSOMNIA
     Dosage: 0.25 MG, HS
     Route: 048
     Dates: start: 20150501, end: 20150506
  2. REFLEX [Suspect]
     Active Substance: MIRTAZAPINE
     Indication: SLEEP DISORDER
     Dosage: 7.5 MG, QD
     Route: 048
     Dates: start: 20150424, end: 20150426
  3. ETIZOLAM [Concomitant]
     Active Substance: ETIZOLAM
     Indication: ANXIETY
     Dosage: 1 MG, QD, ONCE DAILY AT NOON
     Route: 048
     Dates: start: 20150413, end: 20150506
  4. ETIZOLAM [Concomitant]
     Active Substance: ETIZOLAM
     Indication: IRRITABILITY
  5. ZOLPIDEM TARTRATE. [Concomitant]
     Active Substance: ZOLPIDEM TARTRATE
     Indication: INITIAL INSOMNIA
     Dosage: 10 MG, QD
     Route: 048
     Dates: start: 20150413, end: 20150506

REACTIONS (17)
  - Visual acuity reduced [Not Recovered/Not Resolved]
  - Gait disturbance [Not Recovered/Not Resolved]
  - Haematuria [Not Recovered/Not Resolved]
  - Malaise [Not Recovered/Not Resolved]
  - Suicidal ideation [Not Recovered/Not Resolved]
  - Nightmare [Not Recovered/Not Resolved]
  - Amnesia [Not Recovered/Not Resolved]
  - Speech disorder [Not Recovered/Not Resolved]
  - Dizziness [Not Recovered/Not Resolved]
  - Dysarthria [Not Recovered/Not Resolved]
  - Hallucination, auditory [Not Recovered/Not Resolved]
  - Mental impairment [Not Recovered/Not Resolved]
  - Decreased appetite [Not Recovered/Not Resolved]
  - Palpitations [Not Recovered/Not Resolved]
  - Asthenia [Not Recovered/Not Resolved]
  - Constipation [Not Recovered/Not Resolved]
  - Hallucination [Not Recovered/Not Resolved]

NARRATIVE: CASE EVENT DATE: 20150425
